FAERS Safety Report 8615713-5 (Version None)
Quarter: 2012Q3

REPORT INFORMATION
  Report Type: 
  Country: None (occurrence: None)
  Receive Date: 20120823
  Receipt Date: 20120813
  Transmission Date: 20120928
  Serious: Yes (Hospitalization, Other)
  Sender: FDA-Public Use
  Company Number: US-ELI_LILLY_AND_COMPANY-US201202004263

PATIENT
  Sex: Female

DRUGS (12)
  1. SINGULAIR [Concomitant]
  2. AMLODIPINE [Concomitant]
  3. MOBIC [Concomitant]
  4. NIASPAN [Concomitant]
  5. CRESTOR [Concomitant]
  6. LORAZEPAM [Concomitant]
  7. LEVOTHYROXINE SODIUM [Concomitant]
  8. FORTEO [Suspect]
     Indication: OSTEOPOROSIS
     Dosage: 20 UG, QD
     Route: 065
     Dates: start: 20120116
  9. FORTEO [Suspect]
     Dosage: 20 UG, QD
     Dates: start: 20120116
  10. FORTEO [Suspect]
     Dosage: 20 UG, QD
     Route: 065
     Dates: start: 20120116
  11. LISINOPRIL [Concomitant]
  12. FORTEO [Suspect]
     Dosage: 20 UG, QD
     Route: 065
     Dates: start: 20120116

REACTIONS (20)
  - FALL [None]
  - ARTHRITIS [None]
  - INSOMNIA [None]
  - BURSITIS [None]
  - EXOSTOSIS [None]
  - ARTHRALGIA [None]
  - LOSS OF CONSCIOUSNESS [None]
  - BONE PAIN [None]
  - ASTHENIA [None]
  - BACK PAIN [None]
  - VISUAL ACUITY REDUCED [None]
  - ULCER [None]
  - BLOOD GLUCOSE DECREASED [None]
  - DEHYDRATION [None]
  - FLUID RETENTION [None]
  - POSTURE ABNORMAL [None]
  - PAIN [None]
  - OEDEMA MOUTH [None]
  - CATARACT OPERATION [None]
  - FACE OEDEMA [None]
